FAERS Safety Report 22372874 (Version 2)
Quarter: 2023Q2

REPORT INFORMATION
  Report Type: Report from Study
  Country: US (occurrence: None)
  Receive Date: 20230526
  Receipt Date: 20230601
  Transmission Date: 20230722
  Serious: No
  Sender: FDA-Public Use
  Company Number: US-Eisai Medical Research-EC-2023-140833

PATIENT
  Age: 63 Year
  Sex: Male
  Weight: 71.8 kg

DRUGS (29)
  1. LENVATINIB [Suspect]
     Active Substance: LENVATINIB
     Indication: Renal cell carcinoma
     Route: 048
     Dates: start: 20220922, end: 20221121
  2. LENVATINIB [Suspect]
     Active Substance: LENVATINIB
     Route: 048
     Dates: start: 20230112, end: 20230404
  3. BELZUTIFAN [Suspect]
     Active Substance: BELZUTIFAN
     Indication: Renal cell carcinoma
     Route: 048
     Dates: start: 20220922, end: 20221127
  4. BELZUTIFAN [Suspect]
     Active Substance: BELZUTIFAN
     Dosage: STARTING DOSE: 120 MG (FLUCTUATED DOSAGE)
     Route: 048
     Dates: start: 20221215, end: 20230405
  5. POTASSIUM CHLORIDE [Concomitant]
     Active Substance: POTASSIUM CHLORIDE
     Dates: start: 201801
  6. CHOLECALCIFEROL [Concomitant]
     Active Substance: CHOLECALCIFEROL
     Dates: start: 201807
  7. METOPROLOL [Concomitant]
     Active Substance: METOPROLOL
     Dates: start: 202003
  8. COLACE [Concomitant]
     Active Substance: DOCUSATE SODIUM
     Dates: start: 202112
  9. SILVER SULFADIAZENE [Concomitant]
     Active Substance: SILVER SULFADIAZINE
     Dates: start: 202202
  10. MIRALAX [Concomitant]
     Active Substance: POLYETHYLENE GLYCOL 3350
     Dates: start: 202204
  11. LEVOTHYROXINE SODIUM [Concomitant]
     Active Substance: LEVOTHYROXINE SODIUM
     Dates: start: 202207
  12. LANSOPRAZOLE [Concomitant]
     Active Substance: LANSOPRAZOLE
     Dates: start: 20220820
  13. DENOSUMAB [Concomitant]
     Active Substance: DENOSUMAB
     Dates: start: 20220831
  14. LOSARTAN [Concomitant]
     Active Substance: LOSARTAN
     Dates: start: 20220929
  15. SIMETHICONE (DIMETHICONE) [Concomitant]
     Active Substance: DIMETHICONE
     Dates: start: 202209
  16. MORPHINE [Concomitant]
     Active Substance: MORPHINE
     Dates: start: 20221006
  17. CHLORHEXIDINE [Concomitant]
     Active Substance: CHLORHEXIDINE
     Dates: start: 20221020
  18. OXYCODONE [Concomitant]
     Active Substance: OXYCODONE
     Dates: start: 20221025
  19. GABAPENTIN [Concomitant]
     Active Substance: GABAPENTIN
     Dates: start: 20221025
  20. ELECTROLYTES NOS;SODIUM LACTATE [Concomitant]
     Dates: start: 20221124, end: 20221127
  21. ONDANSETRON [Concomitant]
     Active Substance: ONDANSETRON
     Dates: start: 20221124, end: 20221124
  22. CEFEPIME [Concomitant]
     Active Substance: CEFEPIME HYDROCHLORIDE
     Dates: start: 20221127, end: 20221128
  23. METRONIDAZOLE [Concomitant]
     Active Substance: METRONIDAZOLE
     Dates: start: 20221128, end: 20221201
  24. SODIUM CHLORIDE [Concomitant]
     Active Substance: SODIUM CHLORIDE
     Dates: start: 20221128, end: 20221201
  25. MELATONIN [Concomitant]
     Active Substance: MELATONIN
     Dates: start: 20221128, end: 20221201
  26. FAMOTIDINE [Concomitant]
     Active Substance: FAMOTIDINE
     Dates: start: 20221128, end: 20221128
  27. HEPARIN [Concomitant]
     Active Substance: HEPARIN SODIUM
     Dates: start: 20221128, end: 20221128
  28. PANTOPRAZOLE [Concomitant]
     Active Substance: PANTOPRAZOLE
     Dates: start: 20221128, end: 20221202
  29. OXYGEN [Concomitant]
     Active Substance: OXYGEN
     Dates: start: 20221128, end: 20221130

REACTIONS (1)
  - Acute kidney injury [Recovered/Resolved]

NARRATIVE: CASE EVENT DATE: 20221128
